FAERS Safety Report 16060541 (Version 5)
Quarter: 2019Q2

REPORT INFORMATION
  Report Type: Spontaneous
  Country: US (occurrence: US)
  Receive Date: 20190312
  Receipt Date: 20190423
  Transmission Date: 20190711
  Serious: Yes (Other)
  Sender: FDA-Public Use
  Company Number: US-GLAXOSMITHKLINE-US2019GSK043676

PATIENT
  Sex: Female

DRUGS (4)
  1. PREVACID [Suspect]
     Active Substance: LANSOPRAZOLE
     Indication: PRODUCT USED FOR UNKNOWN INDICATION
     Dosage: UNK
     Route: 065
  2. PREVACID [Suspect]
     Active Substance: LANSOPRAZOLE
     Indication: PRODUCT USED FOR UNKNOWN INDICATION
     Dosage: UNK
     Route: 065
  3. OMEPRAZOLE. [Suspect]
     Active Substance: OMEPRAZOLE
     Indication: PRODUCT USED FOR UNKNOWN INDICATION
     Dosage: 20 MG, QD
     Route: 048
  4. OMEPRAZOLE. [Suspect]
     Active Substance: OMEPRAZOLE
     Indication: PRODUCT USED FOR UNKNOWN INDICATION
     Dosage: UNK
     Route: 065

REACTIONS (12)
  - Renal failure [Unknown]
  - Nephrolithiasis [Unknown]
  - Hydronephrosis [Unknown]
  - Dialysis [Unknown]
  - Chronic kidney disease [Unknown]
  - End stage renal disease [Unknown]
  - Diabetic nephropathy [Unknown]
  - Chronic kidney disease-mineral and bone disorder [Unknown]
  - Nephrogenic anaemia [Unknown]
  - Proteinuria [Unknown]
  - Renal tubular acidosis [Unknown]
  - Micturition urgency [Unknown]
